FAERS Safety Report 18280331 (Version 1)
Quarter: 2020Q3

REPORT INFORMATION
  Report Type: Report from Study
  Country: None (occurrence: DO)
  Receive Date: 20200918
  Receipt Date: 20200918
  Transmission Date: 20201103
  Serious: Yes (Other)
  Sender: FDA-Public Use
  Company Number: DO-ABBVIE-20K-279-3570469-00

PATIENT
  Sex: Male
  Weight: 72 kg

DRUGS (1)
  1. HUMIRA [Suspect]
     Active Substance: ADALIMUMAB
     Indication: PSORIASIS
     Route: 058
     Dates: start: 20111220, end: 20200615

REACTIONS (11)
  - Micturition urgency [Unknown]
  - Dysgeusia [Recovered/Resolved]
  - Blood glucose abnormal [Recovered/Resolved]
  - Vision blurred [Recovering/Resolving]
  - Dry mouth [Recovered/Resolved]
  - Visual impairment [Recovering/Resolving]
  - Medical device implantation [Unknown]
  - Psoriasis [Recovered/Resolved]
  - Thirst [Recovered/Resolved]
  - Blindness [Recovering/Resolving]
  - Blood cholesterol abnormal [Recovered/Resolved]

NARRATIVE: CASE EVENT DATE: 2016
